FAERS Safety Report 20685192 (Version 3)
Quarter: 2023Q4

REPORT INFORMATION
  Report Type: Report from Study
  Country: US (occurrence: US)
  Receive Date: 20220407
  Receipt Date: 20231128
  Transmission Date: 20240110
  Serious: Yes (Hospitalization)
  Sender: FDA-Public Use
  Company Number: US-PFIZER INC-202101508155

PATIENT
  Sex: Female
  Weight: 2.56 kg

DRUGS (2)
  1. INVESTIGATIONAL PRODUCT [Suspect]
     Active Substance: INVESTIGATIONAL PRODUCT
     Indication: Immunisation
     Dosage: DOSE 1, 120 UG SINGLE
     Route: 050
     Dates: start: 20211007, end: 20211007
  2. MAGNESIUM SULFATE [Suspect]
     Active Substance: MAGNESIUM SULFATE\MAGNESIUM SULFATE HEPTAHYDRATE
     Indication: Pre-eclampsia
     Dosage: 2 G/HR 24 HOUR INFUSION
     Route: 064
     Dates: start: 20211014, end: 20211015

REACTIONS (3)
  - Maternal exposure during pregnancy [Recovered/Resolved]
  - Premature baby [Recovered/Resolved]
  - Neonatal respiratory depression [Recovered/Resolved]

NARRATIVE: CASE EVENT DATE: 20211007
